FAERS Safety Report 4899516-3 (Version None)
Quarter: 2006Q1

REPORT INFORMATION
  Report Type: 
  Country: None (occurrence: None)
  Receive Date: 20060131
  Receipt Date: 20060118
  Transmission Date: 20060701
  Serious: Yes (Death)
  Sender: FDA-Public Use
  Company Number: 104058

PATIENT
  Age: 61 Year
  Sex: Female

DRUGS (8)
  1. RITUXAN [Suspect]
     Indication: NON-HODGKIN'S LYMPHOMA
     Dosage: 400MG, INTRAVENOUS
     Route: 042
     Dates: start: 20020409, end: 20020611
  2. CYCLOPHOSPHAMIDE [Suspect]
     Indication: NON-HODGKIN'S LYMPHOMA
     Dosage: 950 MG, INTRAVENOUS
     Route: 042
     Dates: start: 20020411, end: 20020613
  3. DOXORUBICIN (DOXORUBICIN HYDROCHLORIDE) SOLUTION FOR INJECTION [Suspect]
     Indication: NON-HODGKIN'S LYMPHOMA
     Dosage: 65 MG, INTRAVENOUS
     Route: 042
     Dates: start: 20020411, end: 20020613
  4. VINCRISTINE [Suspect]
     Indication: NON-HODGKIN'S LYMPHOMA
     Dosage: 1 MG , INTRAVENOUS
     Route: 042
     Dates: start: 20020411, end: 20020613
  5. PREDNISONE [Suspect]
     Indication: NON-HODGKIN'S LYMPHOMA
     Dosage: 60 MG, ORAL
     Route: 048
     Dates: start: 20020411, end: 20020617
  6. ZESULIN (MEQUITAZINE) [Concomitant]
  7. SPIROPENT (CLENBUTEROL HYDROCHLORIDE) [Concomitant]
  8. THEOPHYLLINE [Concomitant]

REACTIONS (7)
  - BACTERIAL INFECTION [None]
  - BLOOD LACTATE DEHYDROGENASE INCREASED [None]
  - LYMPHOCYTE COUNT INCREASED [None]
  - NEUTROPHIL COUNT INCREASED [None]
  - PNEUMOCYSTIS JIROVECI PNEUMONIA [None]
  - RESPIRATORY FAILURE [None]
  - WHITE BLOOD CELL COUNT DECREASED [None]
